FAERS Safety Report 8832845 (Version 4)
Quarter: 2012Q4

REPORT INFORMATION
  Report Type: 
  Country: US (occurrence: US)
  Receive Date: 20121010
  Receipt Date: 20121207
  Transmission Date: 20130627
  Serious: No
  Sender: FDA-Public Use
  Company Number: US-009507513-1210USA002206

PATIENT
  Sex: Male

DRUGS (3)
  1. RIBAVIRIN [Suspect]
     Indication: HEPATITIS C
     Dosage: UNK
     Route: 048
     Dates: start: 20120928
  2. VICTRELIS [Suspect]
     Indication: HEPATITIS C
     Dosage: UNK
     Route: 048
     Dates: start: 20121025
  3. PEGASYS [Concomitant]
     Indication: HEPATITIS C
     Dosage: UNK
     Dates: start: 20120927

REACTIONS (8)
  - Sinus disorder [Unknown]
  - Pain [Unknown]
  - Headache [Unknown]
  - White blood cell count decreased [Unknown]
  - Headache [Unknown]
  - Somnolence [Unknown]
  - Malaise [Unknown]
  - Fatigue [Unknown]
